FAERS Safety Report 8582028-3 (Version None)
Quarter: 2012Q3

REPORT INFORMATION
  Report Type: 
  Country: None (occurrence: None)
  Receive Date: 20120809
  Receipt Date: 20120806
  Transmission Date: 20120928
  Serious: Yes (Death, Other)
  Sender: FDA-Public Use
  Company Number: JP-PFIZER INC-2012178060

PATIENT
  Age: 57 Year
  Sex: Female
  Weight: 55.6 kg

DRUGS (12)
  1. GABAPENTIN [Concomitant]
     Indication: CANCER PAIN
     Dosage: 400 MG, 3X/DAY
     Route: 048
     Dates: start: 20120626, end: 20120721
  2. KETALAR [Concomitant]
     Indication: CANCER PAIN
     Dosage: 4 MG, 4X/DAY
     Route: 048
     Dates: start: 20120718, end: 20120721
  3. SITAGLIPTIN PHOSPHATE [Concomitant]
     Indication: DIABETES MELLITUS
     Dosage: 25 MG, 1X/DAY
     Route: 048
     Dates: start: 20120706, end: 20120721
  4. RISPERDAL [Concomitant]
     Indication: CANCER PAIN
     Dosage: 1 MG, 1X/DAY
     Route: 048
     Dates: start: 20120625, end: 20120721
  5. FENTANYL CITRATE [Concomitant]
     Indication: CANCER PAIN
     Dosage: 12 MG, 1X/DAY
     Route: 062
     Dates: start: 20120630, end: 20120721
  6. CYCLOPHOSPHAMIDE [Suspect]
     Indication: BREAST CANCER
     Dosage: 725 MG, 1X/DAY
     Route: 041
     Dates: start: 20120625
  7. CELEBREX [Concomitant]
     Indication: CANCER PAIN
     Dosage: 100 MG, 2X/DAY
     Route: 048
     Dates: start: 20120627, end: 20120721
  8. BISOPROLOL FUMARATE [Concomitant]
     Indication: HYPERTENSION
     Dosage: 2.5 MG, 1X/DAY
     Route: 048
     Dates: start: 20120706, end: 20120721
  9. EPIRUBICIN HYDROCHLORIDE [Suspect]
     Indication: BREAST CANCER
     Dosage: 108.75 MG, 1X/DAY
     Route: 042
     Dates: start: 20120625
  10. FLUOROURACIL [Suspect]
     Indication: BREAST CANCER
     Dosage: 725 MG, 1X/DAY
     Route: 041
     Dates: start: 20120625
  11. AMARYL [Concomitant]
     Indication: DIABETES MELLITUS
     Dosage: 0.5 MG, 1X/DAY
     Route: 048
     Dates: start: 20120714, end: 20120721
  12. MORPHINE [Concomitant]
     Indication: CANCER PAIN
     Dosage: 30 MG, AS NEEDED
     Route: 048
     Dates: start: 20120626, end: 20120721

REACTIONS (5)
  - DISSEMINATED INTRAVASCULAR COAGULATION [None]
  - FEBRILE NEUTROPENIA [None]
  - CARDIAC ARREST [None]
  - SEPTIC SHOCK [None]
  - WHITE BLOOD CELL COUNT DECREASED [None]
